FAERS Safety Report 15867275 (Version 1)
Quarter: 2019Q1

REPORT INFORMATION
  Report Type: Spontaneous
  Country: US (occurrence: US)
  Receive Date: 20190125
  Receipt Date: 20190125
  Transmission Date: 20190417
  Serious: No
  Sender: FDA-Public Use
  Company Number: US-TEVA-2019-US-999953

PATIENT
  Sex: Female

DRUGS (1)
  1. PALONOSETRON HYDROCHLORIDE INJECTION [Suspect]
     Active Substance: PALONOSETRON HYDROCHLORIDE
     Indication: PROPHYLACTIC CHEMOTHERAPY
     Dosage: DOSE STRENGTH:  0.25 MG/5 ML
     Route: 065
     Dates: start: 20190115

REACTIONS (1)
  - Injection site extravasation [Unknown]

NARRATIVE: CASE EVENT DATE: 20190115
